FAERS Safety Report 16659626 (Version 2)
Quarter: 2020Q2

REPORT INFORMATION
  Report Type: Spontaneous
  Country: NL (occurrence: NL)
  Receive Date: 20190802
  Receipt Date: 20200426
  Transmission Date: 20200713
  Serious: Yes (Hospitalization, Other)
  Sender: FDA-Public Use
  Company Number: NL-AUROBINDO-AUR-APL-2019-044977

PATIENT
  Age: 56 Year
  Sex: Female

DRUGS (13)
  1. SIMVASTATIN. [Interacting]
     Active Substance: SIMVASTATIN
     Indication: PRODUCT USED FOR UNKNOWN INDICATION
     Dosage: 40 MILLIGRAM, ONCE A DAY
     Route: 065
     Dates: start: 201705
  2. ACETYLSALICYLIC ACID [Interacting]
     Active Substance: ASPIRIN
     Indication: PRODUCT USED FOR UNKNOWN INDICATION
     Dosage: 80 MILLIGRAM, ONCE A DAY
     Route: 065
     Dates: start: 201705
  3. BRILIQUE [Concomitant]
     Active Substance: TICAGRELOR
     Indication: PRODUCT USED FOR UNKNOWN INDICATION
     Dosage: 90 MILLIGRAM, EVERY OTHER DAY
     Route: 065
     Dates: start: 201705
  4. PANTOPRAZOL [Concomitant]
     Active Substance: PANTOPRAZOLE SODIUM
     Indication: PRODUCT USED FOR UNKNOWN INDICATION
     Dosage: 40 MILLIGRAM, ONCE A DAY
     Route: 065
     Dates: start: 201705
  5. TRACYDAL [Interacting]
     Active Substance: TRANYLCYPROMINE SULFATE
     Indication: ANXIETY
     Dosage: 50 MILLIGRAM (20-10-10-10 MG)
     Route: 065
     Dates: start: 2016
  6. OXAZEPAM. [Interacting]
     Active Substance: OXAZEPAM
     Dosage: 40 MILLIGRAM, ONCE A DAY
     Route: 065
     Dates: start: 20170501
  7. TRACYDAL [Interacting]
     Active Substance: TRANYLCYPROMINE SULFATE
     Indication: DEPRESSION
     Dosage: 40 OR 80 MG DESCRIBED
     Route: 065
  8. SYNAPAUSE [Concomitant]
     Indication: PRODUCT USED FOR UNKNOWN INDICATION
     Dosage: 1 DOSAGE FORM, ONCE A DAY
     Route: 065
  9. LABETALOL [Concomitant]
     Active Substance: LABETALOL\LABETALOL HYDROCHLORIDE
     Indication: HYPERTENSION
     Dosage: 1 DOSAGE FORM, AS NECESSARY
     Route: 065
  10. FOSINOPRIL [Suspect]
     Active Substance: FOSINOPRIL
     Indication: PRODUCT USED FOR UNKNOWN INDICATION
     Dosage: 10 MILLIGRAM, ONCE A DAY
     Route: 065
     Dates: start: 201705
  11. OXAZEPAM. [Interacting]
     Active Substance: OXAZEPAM
     Indication: PRODUCT USED FOR UNKNOWN INDICATION
     Dosage: 80 TO 90 MG
     Route: 065
  12. OXAZEPAM. [Interacting]
     Active Substance: OXAZEPAM
     Dosage: 10 MILLIGRAM, 4 DAYS (MORE THAN 10 YEARS)
     Route: 065
  13. QUETIAPINE. [Suspect]
     Active Substance: QUETIAPINE
     Indication: SLEEP DISORDER
     Dosage: 25 MILLIGRAM, ONCE A DAY
     Route: 065
     Dates: start: 201705

REACTIONS (16)
  - Left ventricular dysfunction [Not Recovered/Not Resolved]
  - Depression [Recovering/Resolving]
  - Contraindicated product administered [Unknown]
  - Insomnia [Not Recovered/Not Resolved]
  - Intercepted medication error [Unknown]
  - Potentiating drug interaction [Unknown]
  - Blood pressure diastolic increased [Unknown]
  - Myocardial infarction [Unknown]
  - Therapeutic response unexpected [Unknown]
  - Weight increased [Not Recovered/Not Resolved]
  - Sleep disorder [Recovering/Resolving]
  - Alopecia [Not Recovered/Not Resolved]
  - Bradycardia [Unknown]
  - Hypertensive crisis [Unknown]
  - Suicidal ideation [Recovering/Resolving]
  - Orthostatic hypotension [Unknown]

NARRATIVE: CASE EVENT DATE: 2017
